FAERS Safety Report 14985878 (Version 5)
Quarter: 2019Q3

REPORT INFORMATION
  Report Type: Report from Study
  Country: US (occurrence: US)
  Receive Date: 20180607
  Receipt Date: 20190703
  Transmission Date: 20191004
  Serious: Yes (Death, Hospitalization)
  Sender: FDA-Public Use
  Company Number: US-SEATTLE GENETICS-2018SGN01298

PATIENT
  Age: 65 Year
  Sex: Female

DRUGS (19)
  1. CYCLOSPORINE. [Suspect]
     Active Substance: CYCLOSPORINE
     Indication: HODGKIN^S DISEASE
     Dosage: UNK UNK, BID
     Route: 048
  2. NORCO [Concomitant]
     Active Substance: ACETAMINOPHEN\HYDROCODONE BITARTRATE
     Indication: PAIN
     Dosage: UNK UNK, PRN
     Route: 048
     Dates: start: 20170911
  3. HUMALOG [Concomitant]
     Active Substance: INSULIN LISPRO
     Dosage: UNK, PRN
     Route: 058
  4. AMICAR [Concomitant]
     Active Substance: AMINOCAPROIC ACID
     Dosage: 1000 MG, UNK
     Route: 048
     Dates: start: 20170907
  5. PROTONIX [Concomitant]
     Active Substance: PANTOPRAZOLE SODIUM
     Indication: PEPTIC ULCER
     Dosage: 40 MG, BID
     Route: 048
     Dates: start: 20170810
  6. VITAMIN D3 [Concomitant]
     Active Substance: CHOLECALCIFEROL
     Dosage: 1000 IU, UNK
     Route: 048
  7. NEURONTIN [Concomitant]
     Active Substance: GABAPENTIN
     Dosage: 600 MG, UNK
     Route: 048
     Dates: start: 20170907
  8. PROCHLORPERAZINE. [Concomitant]
     Active Substance: PROCHLORPERAZINE
     Indication: NAUSEA
     Dosage: 10 MG, PRN
     Route: 048
     Dates: start: 20170731
  9. PROCHLORPERAZINE. [Concomitant]
     Active Substance: PROCHLORPERAZINE
     Indication: VOMITING
  10. VITAMIN B6 [Concomitant]
     Active Substance: PYRIDOXINE HYDROCHLORIDE
     Dosage: 100 MG, QD
  11. VERAPAMIL [Suspect]
     Active Substance: VERAPAMIL HYDROCHLORIDE
     Indication: HODGKIN^S DISEASE
     Dosage: 120 MG, QID
     Route: 048
  12. ONDANSETRON [Concomitant]
     Active Substance: ONDANSETRON
     Indication: VOMITING
  13. ONDANSETRON [Concomitant]
     Active Substance: ONDANSETRON
     Indication: NAUSEA
     Dosage: 8 MG, PRN
     Route: 048
     Dates: start: 20170922
  14. BRENTUXIMAB VEDOTIN [Suspect]
     Active Substance: BRENTUXIMAB VEDOTIN
     Indication: HODGKIN^S DISEASE
     Dosage: UNK, QCYCLE
     Route: 042
     Dates: start: 20170724, end: 20171002
  15. ATIVAN [Concomitant]
     Active Substance: LORAZEPAM
     Indication: VOMITING
  16. CARAFATE [Concomitant]
     Active Substance: SUCRALFATE
     Indication: DYSPEPSIA
     Dosage: 1 G, PRN
     Route: 048
     Dates: start: 20170814
  17. ATIVAN [Concomitant]
     Active Substance: LORAZEPAM
     Indication: NAUSEA
     Dosage: 1 MG, PRN
     Route: 048
     Dates: start: 20170724
  18. NADOLOL. [Concomitant]
     Active Substance: NADOLOL
     Dosage: 20 MG, UNK
     Route: 048
  19. MOMETASONE [Concomitant]
     Active Substance: MOMETASONE
     Dosage: 2 UNK, UNK
     Route: 045

REACTIONS (1)
  - Respiratory failure [Fatal]

NARRATIVE: CASE EVENT DATE: 20171009
